FAERS Safety Report 6782798-0 (Version None)
Quarter: 2010Q2

REPORT INFORMATION
  Report Type: 
  Country: None (occurrence: None)
  Receive Date: 20100616
  Receipt Date: 20100609
  Transmission Date: 20101027
  Serious: Yes (Other)
  Sender: FDA-Public Use
  Company Number: 013637

PATIENT
  Sex: Female

DRUGS (3)
  1. KEPPRA [Suspect]
     Indication: PARTIAL SEIZURES
     Dosage: 500 MG BID ORAL, (500 MG QOD)
     Route: 048
     Dates: start: 20100101
  2. KEPPRA [Suspect]
     Indication: PARTIAL SEIZURES
     Dosage: 500 MG BID ORAL, (500 MG QOD)
     Route: 048
     Dates: start: 20100324
  3. NEURONTIN [Suspect]
     Indication: PARTIAL SEIZURES
     Dosage: ORAL, 2.4 G, INCREASED DOSE, ORAL
     Route: 048
     Dates: start: 20100324

REACTIONS (3)
  - DIPLOPIA [None]
  - FALL [None]
  - GAIT DISTURBANCE [None]
